FAERS Safety Report 9880861 (Version 7)
Quarter: 2018Q1

REPORT INFORMATION
  Report Type: Spontaneous
  Country: US (occurrence: US)
  Receive Date: 20140207
  Receipt Date: 20180227
  Transmission Date: 20180509
  Serious: Yes (Hospitalization, Other)
  Sender: FDA-Public Use
  Company Number: US-PFIZER INC-2014035140

PATIENT
  Age: 53 Year
  Sex: Female
  Weight: 84 kg

DRUGS (21)
  1. AMBIEN [Concomitant]
     Active Substance: ZOLPIDEM TARTRATE
     Dosage: 5 MG, UNK
  2. BUPROPION. [Concomitant]
     Active Substance: BUPROPION
     Dosage: UNK
     Dates: start: 2013
  3. SERTRALINE [Concomitant]
     Active Substance: SERTRALINE HYDROCHLORIDE
     Indication: DEPRESSION
     Dosage: 150 MG, 1X/DAY (ONCE AT NIGHT)
     Route: 048
     Dates: start: 2012
  4. WELLBUTRIN [Concomitant]
     Active Substance: BUPROPION HYDROCHLORIDE
     Dosage: UNK
     Dates: start: 201003
  5. LYRICA [Suspect]
     Active Substance: PREGABALIN
     Indication: FIBROMYALGIA
     Dosage: (300 MG, MORNING AND ADDITIONAL 150 MG AT NIGHT TIME)
     Route: 048
     Dates: start: 2011
  6. LYRICA [Suspect]
     Active Substance: PREGABALIN
     Indication: SPINAL CORD INJURY
     Dosage: 1-150MG
     Dates: start: 201309
  7. LYRICA [Suspect]
     Active Substance: PREGABALIN
     Indication: NEUROPATHY PERIPHERAL
     Dosage: 150 MG, 1X/DAY(BEDTIME)
     Dates: start: 201310
  8. SERTRALINE [Concomitant]
     Active Substance: SERTRALINE HYDROCHLORIDE
     Indication: SUICIDAL IDEATION
  9. ZOCOR [Concomitant]
     Active Substance: SIMVASTATIN
     Dosage: UNK
     Dates: start: 201003
  10. LYRICA [Suspect]
     Active Substance: PREGABALIN
     Indication: BONE NEOPLASM
     Dosage: 150 PRN+300 QHS
     Route: 048
     Dates: start: 20130819
  11. PROGRAF [Concomitant]
     Active Substance: TACROLIMUS\TACROLIMUS ANHYDROUS
     Indication: TRANSPLANT REJECTION
     Dosage: UNK
  12. ZOLOFT [Concomitant]
     Active Substance: SERTRALINE HYDROCHLORIDE
     Indication: ANXIETY
     Dosage: UNK
     Dates: start: 201205
  13. HECORIA [Concomitant]
     Active Substance: TACROLIMUS
     Indication: LIVER TRANSPLANT
     Dosage: UNK
     Dates: start: 201303
  14. HECORIA [Concomitant]
     Active Substance: TACROLIMUS
     Dosage: 4 MG, 2X/DAY (4 MG IN THE MORNING AND 4 MG AT NIGHT)
     Route: 048
     Dates: start: 201003
  15. ZOLPIDEM [Concomitant]
     Active Substance: ZOLPIDEM\ZOLPIDEM TARTRATE
     Dosage: UNK
  16. LYRICA [Suspect]
     Active Substance: PREGABALIN
     Indication: RESTLESS LEGS SYNDROME
     Dosage: 450 MG (BY TAKING 3 CAPSULES OF 150MG), 1X/DAY
     Route: 048
     Dates: start: 201307, end: 201402
  17. LYRICA [Suspect]
     Active Substance: PREGABALIN
     Dosage: 300 MG, 1X/DAY(BEDTIME)
     Dates: start: 201310
  18. BUPROPION HCL ER [Concomitant]
     Active Substance: BUPROPION HYDROCHLORIDE
     Indication: SUICIDAL IDEATION
     Dosage: 150 MG, 1X/DAY (ONCE A DAY IN THE MORNING)
     Route: 048
     Dates: start: 201003
  19. ATORVASTATIN [Concomitant]
     Active Substance: ATORVASTATIN
     Indication: BLOOD CHOLESTEROL INCREASED
     Dosage: 20 MG, 1X/DAY (AT NIGHTTIME ONCE A DAY)
     Route: 048
  20. LYRICA [Suspect]
     Active Substance: PREGABALIN
     Indication: NERVE INJURY
     Dosage: 1-300MG
     Dates: start: 201309
  21. HYDROXYZINE [Concomitant]
     Active Substance: HYDROXYZINE HYDROCHLORIDE
     Dosage: UNK

REACTIONS (5)
  - Bone cancer [Not Recovered/Not Resolved]
  - Insomnia [Not Recovered/Not Resolved]
  - Malaise [Unknown]
  - Speech disorder [Unknown]
  - Pain [Not Recovered/Not Resolved]

NARRATIVE: CASE EVENT DATE: 201402
